FAERS Safety Report 13387070 (Version 2)
Quarter: 2017Q2

REPORT INFORMATION
  Report Type: Spontaneous
  Country: US (occurrence: US)
  Receive Date: 20170330
  Receipt Date: 20170501
  Transmission Date: 20170830
  Serious: Yes (Other)
  Sender: FDA-Public Use
  Company Number: PHEH2017US008211

PATIENT
  Age: 52 Year
  Sex: Male

DRUGS (1)
  1. GILENYA [Suspect]
     Active Substance: FINGOLIMOD HYDROCHLORIDE
     Indication: PRODUCT USED FOR UNKNOWN INDICATION
     Dosage: UNK
     Route: 065

REACTIONS (6)
  - Vitamin D deficiency [Unknown]
  - Blood pressure systolic increased [Unknown]
  - Drug ineffective [Unknown]
  - Stress [Unknown]
  - Central nervous system lesion [Unknown]
  - Sleep disorder [Unknown]
